FAERS Safety Report 9376760 (Version 2)
Quarter: 2013Q3

REPORT INFORMATION
  Report Type: Spontaneous
  Country: FR (occurrence: FR)
  Receive Date: 20130701
  Receipt Date: 20130717
  Transmission Date: 20140515
  Serious: Yes (Other)
  Sender: FDA-Public Use
  Company Number: FR-JNJFOC-20130616436

PATIENT
  Sex: Male

DRUGS (4)
  1. XARELTO [Suspect]
     Indication: CEREBROVASCULAR ACCIDENT PROPHYLAXIS
     Route: 048
     Dates: start: 201304
  2. XARELTO [Suspect]
     Indication: ATRIAL FIBRILLATION
     Route: 048
     Dates: start: 201304
  3. CYMBALTA [Interacting]
     Indication: DEPRESSION
     Route: 065
     Dates: start: 201303
  4. CARDENSIEL [Concomitant]
     Route: 065

REACTIONS (3)
  - Hypotension [Recovered/Resolved]
  - Drug interaction [Unknown]
  - Prescribed underdose [Unknown]
